FAERS Safety Report 7370097-8 (Version None)
Quarter: 2011Q1

REPORT INFORMATION
  Report Type: 
  Country: None (occurrence: None)
  Receive Date: 20110323
  Receipt Date: 20110311
  Transmission Date: 20110831
  Serious: Yes (Other)
  Sender: FDA-Public Use
  Company Number: PHHY2011US05427

PATIENT
  Sex: Female

DRUGS (7)
  1. TRAMADOL [Concomitant]
     Dosage: UNK
  2. TEGRETOL [Concomitant]
     Dosage: 100 MG, BID
  3. NAPROSYN [Concomitant]
     Dosage: 500 MG, BID
  4. PROTONIX [Concomitant]
     Dosage: 40 MG, QD
  5. PAXIL [Concomitant]
     Dosage: 20 MG, QD
  6. GILENYA [Suspect]
     Indication: MULTIPLE SCLEROSIS RELAPSE
     Dosage: 0.5 MG, QD
     Route: 048
     Dates: start: 20110119
  7. MACROBID [Concomitant]
     Dosage: 100 MG, QD

REACTIONS (2)
  - TREMOR [None]
  - URINARY TRACT INFECTION [None]
